FAERS Safety Report 6371726-8 (Version None)
Quarter: 2009Q3

REPORT INFORMATION
  Report Type: 
  Country: None (occurrence: None)
  Receive Date: 20090923
  Receipt Date: 20090911
  Transmission Date: 20100115
  Serious: Yes (Life-Threatening, Hospitalization)
  Sender: FDA-Public Use
  Company Number: KR-PFIZER INC-2009253418

PATIENT
  Age: 68 Year

DRUGS (3)
  1. SUNITINIB MALATE [Suspect]
     Indication: METASTATIC GASTRIC CANCER
     Dosage: 25 MG DAILY, 2/1 SCHEDULE
     Route: 048
     Dates: start: 20090430, end: 20090802
  2. XELODA [Suspect]
     Indication: METASTATIC GASTRIC CANCER
     Dosage: 1500 MG, 2X/DAY, DAY 1-14
     Route: 048
     Dates: start: 20090430, end: 20090803
  3. ELOXATIN [Suspect]
     Indication: METASTATIC GASTRIC CANCER
     Dosage: 175 MG, EVERY 3 WEEKS
     Route: 042
     Dates: start: 20090430, end: 20090720

REACTIONS (1)
  - CEREBRAL HAEMORRHAGE [None]
